FAERS Safety Report 7942022-X (Version None)
Quarter: 2011Q4

REPORT INFORMATION
  Report Type: 
  Country: None (occurrence: None)
  Receive Date: 20111128
  Receipt Date: 20111117
  Transmission Date: 20120403
  Serious: Yes (Hospitalization)
  Sender: FDA-Public Use
  Company Number: US-BAYER-2011-049738

PATIENT
  Age: 26 Year
  Sex: Female
  Weight: 56 kg

DRUGS (6)
  1. YAZ [Suspect]
     Indication: ACNE
  2. ORTHO-NOVUM [Concomitant]
  3. NSAID'S [Concomitant]
     Dosage: UNK UNK, PRN
     Route: 048
  4. YAZ [Suspect]
     Indication: CONTRACEPTION
     Dosage: UNK
     Dates: start: 20090401, end: 20091201
  5. ORTHO TRI-CYCLEN [Concomitant]
  6. YAZ [Suspect]
     Indication: PREMENSTRUAL SYNDROME

REACTIONS (9)
  - CHOLECYSTITIS CHRONIC [None]
  - GASTROINTESTINAL DISORDER [None]
  - INJURY [None]
  - ABDOMINAL PAIN [None]
  - PAIN [None]
  - GALLBLADDER INJURY [None]
  - ANXIETY [None]
  - GENERAL PHYSICAL HEALTH DETERIORATION [None]
  - EMOTIONAL DISTRESS [None]
